FAERS Safety Report 7377743-3 (Version None)
Quarter: 2011Q1

REPORT INFORMATION
  Report Type: 
  Country: None (occurrence: None)
  Receive Date: 20110316
  Receipt Date: 20110309
  Transmission Date: 20110831
  Serious: Yes (Hospitalization)
  Sender: FDA-Public Use
  Company Number: AVE_02086_2011

PATIENT
  Sex: Male

DRUGS (1)
  1. CLONIDINE [Suspect]
     Indication: HYPERTENSION
     Dosage: 0.3 MG, QD,  VIA 1/WEEKLY PATCH TRANSDERMAL
     Route: 062

REACTIONS (4)
  - APPLICATION SITE PAIN [None]
  - PNEUMONIA [None]
  - MUSCULOSKELETAL PAIN [None]
  - PAIN IN EXTREMITY [None]
